FAERS Safety Report 18651640 (Version 6)
Quarter: 2021Q4

REPORT INFORMATION
  Report Type: Report from Study
  Country: US (occurrence: US)
  Receive Date: 20201222
  Receipt Date: 20211019
  Transmission Date: 20220304
  Serious: Yes (Death, Hospitalization)
  Sender: FDA-Public Use
  Company Number: NVSC2020US335082

PATIENT
  Age: 52 Year
  Sex: Female
  Weight: 52.16 kg

DRUGS (7)
  1. TREPROSTINIL [Suspect]
     Active Substance: TREPROSTINIL
     Indication: Pulmonary arterial hypertension
     Dosage: 119 NG/KG/MIN, CONT
     Route: 042
     Dates: start: 20200113
  2. TREPROSTINIL [Suspect]
     Active Substance: TREPROSTINIL
     Dosage: 119 NG/KG/MIN, CONT
     Route: 042
  3. TREPROSTINIL [Suspect]
     Active Substance: TREPROSTINIL
     Dosage: 119 NG/KG/MIN,
     Route: 042
  4. TREPROSTINIL [Suspect]
     Active Substance: TREPROSTINIL
     Dosage: UNK
     Route: 065
  5. ADEMPAS [Concomitant]
     Active Substance: RIOCIGUAT
     Indication: Product used for unknown indication
     Dosage: UNK
     Route: 065
  6. OPSUMIT [Concomitant]
     Active Substance: MACITENTAN
     Indication: Product used for unknown indication
     Dosage: UNK
     Route: 065
  7. REMODULIN [Concomitant]
     Active Substance: TREPROSTINIL
     Indication: Product used for unknown indication
     Dosage: UNK
     Route: 065

REACTIONS (7)
  - Death [Fatal]
  - Gastric disorder [Unknown]
  - Abdominal distension [Unknown]
  - Weight decreased [Unknown]
  - Failure to thrive [Unknown]
  - Complication associated with device [Unknown]
  - Tooth abscess [Unknown]

NARRATIVE: CASE EVENT DATE: 20201202
